FAERS Safety Report 26044704 (Version 1)
Quarter: 2025Q4

REPORT INFORMATION
  Report Type: Spontaneous
  Country: EU (occurrence: EU)
  Receive Date: 20251114
  Receipt Date: 20251114
  Transmission Date: 20260117
  Serious: Yes (Other)
  Sender: MSN LABORATORIES PRIVATE LIMITED
  Company Number: EU-MSNLABS-2025MSNLIT03331

PATIENT

DRUGS (1)
  1. CAPECITABINE [Suspect]
     Active Substance: CAPECITABINE
     Indication: Gallbladder adenocarcinoma
     Dosage: FOUR CYCLES
     Route: 065
     Dates: start: 202310

REACTIONS (4)
  - Gastrointestinal toxicity [Unknown]
  - Arteriospasm coronary [Unknown]
  - Systemic lupus erythematosus rash [Recovered/Resolved]
  - Antinuclear antibody positive [Unknown]
